FAERS Safety Report 8365443-2 (Version None)
Quarter: 2012Q2

REPORT INFORMATION
  Report Type: 
  Country: None (occurrence: None)
  Receive Date: 20120516
  Receipt Date: 20120510
  Transmission Date: 20120825
  Serious: Yes (Other)
  Sender: FDA-Public Use
  Company Number: NL-PFIZER INC-2012115016

PATIENT
  Age: 47 Year
  Sex: Female
  Weight: 127 kg

DRUGS (1)
  1. SERTRALINE HYDROCHLORIDE [Suspect]
     Indication: DEPRESSION
     Dosage: 200 MG, 1X/DAY
     Dates: start: 20100131, end: 20120310

REACTIONS (1)
  - POST GASTRIC SURGERY SYNDROME [None]
